FAERS Safety Report 10675228 (Version 1)
Quarter: 2014Q4

REPORT INFORMATION
  Report Type: Spontaneous
  Country: US (occurrence: US)
  Receive Date: 20141224
  Receipt Date: 20141224
  Transmission Date: 20150529
  Serious: Yes (Other)
  Sender: FDA-Public Use
  Company Number: US-SA-2014SA174035

PATIENT
  Age: 76 Year
  Sex: Female

DRUGS (2)
  1. LANTUS [Suspect]
     Active Substance: INSULIN GLARGINE
     Indication: TYPE 1 DIABETES MELLITUS
     Dosage: DOSE: 40 UNIST IN THE MORNING AND 50 UNITS IN THE EVENING
     Route: 065
  2. LANTUS [Suspect]
     Active Substance: INSULIN GLARGINE
     Indication: TYPE 1 DIABETES MELLITUS
     Dosage: DOSE: 15-30 UNITS
     Route: 065

REACTIONS (6)
  - Feeling abnormal [Unknown]
  - Drug administration error [Unknown]
  - Asthenia [Unknown]
  - Weight decreased [Unknown]
  - Tremor [Unknown]
  - Blood glucose decreased [Unknown]
